FAERS Safety Report 4443129-4 (Version None)
Quarter: 2004Q3

REPORT INFORMATION
  Report Type: 
  Country: None (occurrence: None)
  Receive Date: 20040903
  Receipt Date: 20040802
  Transmission Date: 20050211
  Serious: Yes (Other)
  Sender: FDA-Public Use
  Company Number: 2004UW16345

PATIENT
  Age: 80 Year
  Sex: Male
  Weight: 85.2762 kg

DRUGS (12)
  1. CRESTOR [Suspect]
     Indication: HYPERCHOLESTEROLAEMIA
     Dosage: 10 MG QD PO
     Route: 048
  2. OCUVITE [Concomitant]
  3. TOPROL-XL [Concomitant]
  4. ALTACE [Concomitant]
  5. MAXZIDE [Concomitant]
  6. FOLIC ACID [Concomitant]
  7. ASPIRIN [Concomitant]
  8. FLOMAX [Concomitant]
  9. CELEBREX [Concomitant]
  10. PROTONIX [Concomitant]
  11. EFFEXOR [Concomitant]
  12. LIBRIUM [Concomitant]

REACTIONS (1)
  - BLOOD PRESSURE DECREASED [None]
